FAERS Safety Report 24933271 (Version 1)
Quarter: 2025Q1

REPORT INFORMATION
  Report Type: Spontaneous
  Country: NL (occurrence: NL)
  Receive Date: 20250206
  Receipt Date: 20250206
  Transmission Date: 20250409
  Serious: No
  Sender: ALKEM
  Company Number: NL-ALKEM LABORATORIES LIMITED-NL-ALKEM-2024-20189

PATIENT
  Age: 68 Year
  Sex: Male

DRUGS (2)
  1. GABAPENTIN [Suspect]
     Active Substance: GABAPENTIN
     Indication: Product used for unknown indication
     Route: 065
  2. GABAPENTIN [Suspect]
     Active Substance: GABAPENTIN
     Route: 065

REACTIONS (1)
  - Hypoglycaemia [Recovered/Resolved]
